FAERS Safety Report 23125099 (Version 1)
Quarter: 2023Q4

REPORT INFORMATION
  Report Type: Spontaneous
  Country: US (occurrence: None)
  Receive Date: 20231025
  Receipt Date: 20231025
  Transmission Date: 20240110
  Serious: Yes (Hospitalization)
  Sender: FDA-Public Use
  Company Number: None

PATIENT
  Age: 77 Year
  Sex: Male

DRUGS (14)
  1. ABIRATERONE. [Suspect]
     Active Substance: ABIRATERONE ACETATE
     Indication: Prostate cancer
     Dosage: FREQUENCY : DAILY;?
     Route: 048
     Dates: start: 20230929
  2. VITAMINS [Concomitant]
     Active Substance: VITAMINS
  3. OMEPRAZOLE [Concomitant]
     Active Substance: OMEPRAZOLE
  4. POTASSIUM [Concomitant]
     Active Substance: POTASSIUM
  5. SPIRONOLACTONE [Concomitant]
     Active Substance: SPIRONOLACTONE
  6. TAMSULOSIN [Concomitant]
     Active Substance: TAMSULOSIN
  7. URSODIOL [Concomitant]
     Active Substance: URSODIOL
  8. VITAMIN C [Concomitant]
     Active Substance: ASCORBIC ACID
  9. XGEVA [Concomitant]
     Active Substance: DENOSUMAB
  10. ZOLPIDEM [Concomitant]
     Active Substance: ZOLPIDEM TARTRATE
  11. CARVEDILOL [Concomitant]
     Active Substance: CARVEDILOL
  12. FIRMAGON [Concomitant]
     Active Substance: DEGARELIX ACETATE
  13. FUROSEMIDE [Concomitant]
     Active Substance: FUROSEMIDE
  14. LEVOTHYROXINE [Concomitant]
     Active Substance: LEVOTHYROXINE

REACTIONS (1)
  - Pulmonary oedema [None]
